FAERS Safety Report 19813096 (Version 1)
Quarter: 2021Q3

REPORT INFORMATION
  Report Type: Spontaneous
  Country: US (occurrence: US)
  Receive Date: 20210909
  Receipt Date: 20210909
  Transmission Date: 20211014
  Serious: No
  Sender: FDA-Public Use
  Company Number: None

PATIENT
  Age: 6 Year
  Sex: Female
  Weight: 18.9 kg

DRUGS (1)
  1. HRC HEALTH HAND SANITIZER [Suspect]
     Active Substance: ALCOHOL
     Dosage: ?          QUANTITY:8 OZ;?

REACTIONS (6)
  - Eye pain [None]
  - Eye swelling [None]
  - Product contamination chemical [None]
  - Accidental exposure to product [None]
  - Device malfunction [None]
  - Corneal abrasion [None]

NARRATIVE: CASE EVENT DATE: 20210831
